FAERS Safety Report 19876840 (Version 6)
Quarter: 2021Q4

REPORT INFORMATION
  Report Type: Spontaneous
  Country: US (occurrence: US)
  Receive Date: 20210923
  Receipt Date: 20211216
  Transmission Date: 20220303
  Serious: Yes (Hospitalization)
  Sender: FDA-Public Use
  Company Number: US-CELGENE-USA-20210905354

PATIENT
  Age: 77 Year
  Sex: Male
  Weight: 93.3 kg

DRUGS (20)
  1. AZACITIDINE [Suspect]
     Active Substance: AZACITIDINE
     Indication: Myelodysplastic syndrome
     Dosage: 75 MILLIGRAM/SQ. METER (7 DAYS WITHIN THE FIRST 9 CALENDAR DAYS OF EACH 28-DAY CYCLE)
     Route: 041
     Dates: start: 20210805
  2. VENETOCLAX [Suspect]
     Active Substance: VENETOCLAX
     Indication: Myelodysplastic syndrome
     Route: 065
  3. LEVAQUIN [Concomitant]
     Active Substance: LEVOFLOXACIN
     Indication: Infection prophylaxis
     Dosage: 1000 MILLIGRAM
     Route: 048
     Dates: start: 20210805
  4. LEVAQUIN [Concomitant]
     Active Substance: LEVOFLOXACIN
     Indication: Pneumonia
  5. CLOBETASOL [Concomitant]
     Active Substance: CLOBETASOL
     Indication: Pruritus
     Dosage: 0.05 PERCENT
     Route: 058
     Dates: start: 20210820
  6. ALLOPURINOL [Concomitant]
     Active Substance: ALLOPURINOL
     Indication: Blood uric acid increased
     Dosage: 300 MILLIGRAM
     Route: 048
     Dates: start: 20210820
  7. ONDANSETRON [Concomitant]
     Active Substance: ONDANSETRON
     Indication: Premedication
     Dosage: 8 MILLIGRAM
     Route: 048
     Dates: start: 20210808
  8. AZELASTINE [Concomitant]
     Active Substance: AZELASTINE
     Indication: Multiple allergies
     Dosage: 274 MICROGRAM
     Route: 045
     Dates: start: 20210820
  9. CELECOXIB [Concomitant]
     Active Substance: CELECOXIB
     Indication: Pain
     Dosage: 400 MILLIGRAM
     Route: 048
     Dates: start: 20210820
  10. COLCHICINE [Concomitant]
     Active Substance: COLCHICINE
     Indication: Pain
     Dosage: .6 MILLIGRAM
     Route: 048
     Dates: start: 20210805
  11. ESCITALOPRAM OXALATE [Concomitant]
     Active Substance: ESCITALOPRAM OXALATE
     Indication: Anxiety
     Dosage: 20 MILLIGRAM
     Route: 048
     Dates: start: 20210805
  12. FAMOTIDINE [Concomitant]
     Active Substance: FAMOTIDINE
     Indication: Gastrooesophageal reflux disease
     Dosage: 20 MILLIGRAM
     Route: 048
     Dates: start: 20210805
  13. LEVOFLOXACIN [Concomitant]
     Active Substance: LEVOFLOXACIN
     Indication: Swelling
     Dosage: 500 MILLIGRAM
     Route: 048
     Dates: start: 20210805
  14. LISINOPRIL [Concomitant]
     Active Substance: LISINOPRIL
     Indication: Hypertension
     Dosage: 30 MILLIGRAM
     Route: 048
     Dates: start: 20210805
  15. LORATADINE [Concomitant]
     Active Substance: LORATADINE
     Indication: Multiple allergies
     Dosage: 10 MILLIGRAM
     Route: 048
     Dates: start: 20210805
  16. MAGNESIUM [Concomitant]
     Active Substance: MAGNESIUM
     Indication: Blood magnesium decreased
     Dosage: 71.5 MILLIGRAM
     Route: 048
     Dates: start: 20210820
  17. MESALAMINE [Concomitant]
     Active Substance: MESALAMINE
     Indication: Colitis ulcerative
     Dosage: 1.5 MILLIGRAM
     Route: 048
     Dates: start: 20210805
  18. PANTOPRAZOLE [Concomitant]
     Active Substance: PANTOPRAZOLE
     Indication: Colitis ulcerative
     Dosage: 40 MILLIGRAM
     Route: 048
     Dates: start: 20210805
  19. PREDNISONE [Concomitant]
     Active Substance: PREDNISONE
     Indication: Chondrocalcinosis pyrophosphate
     Dosage: 20 MILLIGRAM
     Route: 048
     Dates: start: 20210805
  20. LORAZEPAM [Concomitant]
     Active Substance: LORAZEPAM
     Indication: Anxiety
     Dosage: .5 MILLIGRAM
     Route: 048
     Dates: start: 20210805

REACTIONS (1)
  - Pneumonia [Recovered/Resolved]

NARRATIVE: CASE EVENT DATE: 20210907
